FAERS Safety Report 8559405-X (Version None)
Quarter: 2012Q3

REPORT INFORMATION
  Report Type: 
  Country: None (occurrence: None)
  Receive Date: 20120802
  Receipt Date: 20120725
  Transmission Date: 20120928
  Serious: Yes (Hospitalization, Other)
  Sender: FDA-Public Use
  Company Number: US-BAYER-201019469NA

PATIENT
  Age: 44 Year
  Sex: Female
  Weight: 70.455 kg

DRUGS (11)
  1. HYDROCODONE [Concomitant]
     Dates: start: 20010201
  2. ALPRAZOLAM [Concomitant]
     Dosage: 0.5 MG, UNK
     Route: 048
     Dates: start: 20080418
  3. YASMIN [Suspect]
     Indication: ORAL CONTRACEPTION
     Dosage: UNK UNK, QD
     Route: 048
     Dates: start: 20040417, end: 20060423
  4. IBUPROFEN [Concomitant]
     Dates: start: 20050801
  5. TRAMADOL HYDROCHLORIDE [Concomitant]
     Dates: start: 20041101
  6. LEXAPRO [Concomitant]
     Dates: start: 20050501, end: 20090315
  7. ELAVIL [Concomitant]
  8. SUMATRIPTAN [Concomitant]
     Dosage: UNK
     Dates: start: 20050101, end: 20090315
  9. ANTIMIGRAINE PREPARATIONS [Concomitant]
     Dates: start: 20050101, end: 20090301
  10. EFFEXOR [Concomitant]
  11. IMITREX [Concomitant]
     Dates: start: 20050101, end: 20081201

REACTIONS (6)
  - BILIARY COLIC [None]
  - DEEP VEIN THROMBOSIS [None]
  - CHOLECYSTITIS CHRONIC [None]
  - PAIN IN EXTREMITY [None]
  - OEDEMA PERIPHERAL [None]
  - CHOLELITHIASIS [None]
